FAERS Safety Report 18574002 (Version 1)
Quarter: 2020Q4

REPORT INFORMATION
  Report Type: Spontaneous
  Country: US (occurrence: US)
  Receive Date: 20201201
  Receipt Date: 20201201
  Transmission Date: 20210114
  Serious: Yes (Hospitalization)
  Sender: FDA-Public Use
  Company Number: None

PATIENT
  Age: 79 Year
  Sex: Female
  Weight: 75.5 kg

DRUGS (4)
  1. ALOXI [Suspect]
     Active Substance: PALONOSETRON HYDROCHLORIDE
     Dates: end: 20201029
  2. DEXAMETHASONE. [Suspect]
     Active Substance: DEXAMETHASONE
     Indication: PULMONARY OEDEMA
     Dates: end: 20201101
  3. FOSAPREPITANT DIMEGLUMINE. [Suspect]
     Active Substance: FOSAPREPITANT DIMEGLUMINE
     Dates: end: 20201029
  4. OLANZAPINE. [Suspect]
     Active Substance: OLANZAPINE
     Dates: end: 20201101

REACTIONS (5)
  - Immunosuppression [None]
  - Mitral valve incompetence [None]
  - Cardiotoxicity [None]
  - Ejection fraction decreased [None]
  - Left atrial dilatation [None]

NARRATIVE: CASE EVENT DATE: 20201110
